FAERS Safety Report 9345430 (Version 1)
Quarter: 2013Q2

REPORT INFORMATION
  Report Type: Spontaneous
  Country: US (occurrence: US)
  Receive Date: 20130613
  Receipt Date: 20130613
  Transmission Date: 20140414
  Serious: No
  Sender: FDA-Public Use
  Company Number: US-B.I. PHARMACEUTICALS,INC./RIDGEFIELD-2013-BI-16301BP

PATIENT
  Age: 60 Year
  Sex: Female
  Weight: 75 kg

DRUGS (6)
  1. PRADAXA [Suspect]
     Indication: ATRIAL FIBRILLATION
     Dosage: 300 MG
     Route: 048
     Dates: start: 201201, end: 201305
  2. BENICAR [Concomitant]
     Indication: HYPERTENSION
     Dosage: 10 MG
     Route: 048
     Dates: start: 201201
  3. VITAMIN C [Concomitant]
     Route: 048
  4. VITAMIN D3 [Concomitant]
     Route: 048
  5. CYTOMEL SR [Concomitant]
     Indication: HYPOTHYROIDISM
     Dosage: 5 MCG
     Route: 048
  6. XARELTO [Concomitant]
     Indication: ATRIAL FIBRILLATION
     Route: 048

REACTIONS (3)
  - Dry eye [Not Recovered/Not Resolved]
  - Heart rate irregular [Not Recovered/Not Resolved]
  - Eye complication associated with device [Not Recovered/Not Resolved]
